FAERS Safety Report 12472916 (Version 3)
Quarter: 2016Q3

REPORT INFORMATION
  Report Type: Spontaneous
  Country: DE (occurrence: DE)
  Receive Date: 20160616
  Receipt Date: 20160705
  Transmission Date: 20161109
  Serious: Yes (Other)
  Sender: FDA-Public Use
  Company Number: DE-GILEAD-2016-0217936

PATIENT
  Age: 51 Year
  Sex: Male

DRUGS (13)
  1. VIREAD [Suspect]
     Active Substance: TENOFOVIR DISOPROXIL FUMARATE
     Indication: CHRONIC HEPATITIS B
     Dosage: 1 DF, UNK
     Route: 065
     Dates: start: 200705, end: 201602
  2. PAROXETIN                          /00830801/ [Concomitant]
     Active Substance: PAROXETINE HYDROCHLORIDE
     Dosage: UNK
     Route: 065
  3. LYRICA [Concomitant]
     Active Substance: PREGABALIN
     Dosage: UNK
     Route: 065
  4. VIREAD [Suspect]
     Active Substance: TENOFOVIR DISOPROXIL FUMARATE
     Dosage: 1 DF, Q3WK
     Route: 065
     Dates: start: 201102, end: 201404
  5. PRAVASTATIN. [Concomitant]
     Active Substance: PRAVASTATIN
     Dosage: UNK
     Route: 065
  6. VIREAD [Suspect]
     Active Substance: TENOFOVIR DISOPROXIL FUMARATE
     Dosage: 1 DF, Q3WK
     Route: 065
     Dates: start: 201412, end: 201602
  7. ATAZANAVIR SULFATE W/RITONAVIR [Concomitant]
     Active Substance: ATAZANAVIR SULFATE\RITONAVIR
     Indication: HIV INFECTION
     Dosage: UNK
     Route: 065
  8. VIREAD [Suspect]
     Active Substance: TENOFOVIR DISOPROXIL FUMARATE
     Dosage: 1 DF, QOD
     Route: 065
     Dates: start: 2009
  9. KIVEXA [Concomitant]
     Active Substance: ABACAVIR SULFATE\LAMIVUDINE
     Indication: HIV INFECTION
  10. ZOLPIDEM [Concomitant]
     Active Substance: ZOLPIDEM\ZOLPIDEM TARTRATE
     Dosage: UNK
     Route: 065
  11. PENICILLIN                         /00000901/ [Concomitant]
     Active Substance: PENICILLIN G
     Dosage: UNK
     Route: 065
  12. QUETIAPIN [Concomitant]
     Active Substance: QUETIAPINE
     Dosage: UNK
     Route: 065
  13. ASA [Concomitant]
     Active Substance: ASPIRIN
     Dosage: UNK
     Route: 065

REACTIONS (4)
  - Fanconi syndrome acquired [Not Recovered/Not Resolved]
  - Chronic kidney disease [Not Recovered/Not Resolved]
  - Renal impairment [Not Recovered/Not Resolved]
  - Blood creatinine increased [Unknown]

NARRATIVE: CASE EVENT DATE: 2009
